FAERS Safety Report 16563680 (Version 1)
Quarter: 2019Q3

REPORT INFORMATION
  Report Type: Spontaneous
  Country: US (occurrence: US)
  Receive Date: 20190712
  Receipt Date: 20190712
  Transmission Date: 20191004
  Serious: No
  Sender: FDA-Public Use
  Company Number: US-TORRENT-00006819

PATIENT
  Sex: Male
  Weight: 81 kg

DRUGS (3)
  1. AMLODIPINE, VALSARTAN, HYDROCHLOROTHIAZIDE [Suspect]
     Active Substance: AMLODIPINE BESYLATE\HYDROCHLOROTHIAZIDE\VALSARTAN
     Indication: BLOOD PRESSURE MEASUREMENT
     Dosage: UNKNOWN
     Dates: start: 20180809
  2. LIPITOR [Concomitant]
     Active Substance: ATORVASTATIN CALCIUM
     Indication: PRODUCT USED FOR UNKNOWN INDICATION
     Dosage: UNKNOWN
  3. SINGULAIR [Concomitant]
     Active Substance: MONTELUKAST SODIUM
     Indication: PRODUCT USED FOR UNKNOWN INDICATION
     Dosage: 10 MG AT NIGHT

REACTIONS (2)
  - Somnolence [Unknown]
  - Fatigue [Unknown]
